FAERS Safety Report 23887875 (Version 3)
Quarter: 2024Q2

REPORT INFORMATION
  Report Type: Spontaneous
  Country: US (occurrence: US)
  Receive Date: 20240523
  Receipt Date: 20240614
  Transmission Date: 20240715
  Serious: No
  Sender: FDA-Public Use
  Company Number: US-862174955-ML2024-03023

PATIENT

DRUGS (1)
  1. DORZOLAMIDE HYDROCHLORIDE [Suspect]
     Active Substance: DORZOLAMIDE HYDROCHLORIDE
     Indication: Intraocular pressure increased
     Dosage: DORZOLAMIDE HAS BEEN ADDED TO MY EYE MEDICATION ABOUT A YEAR AND A HALF AGO TO CONTROL PRESSURE THAT

REACTIONS (3)
  - Intraocular pressure increased [Unknown]
  - Product packaging quantity issue [Unknown]
  - Product dose omission issue [Unknown]
